FAERS Safety Report 12299420 (Version 1)
Quarter: 2016Q2

REPORT INFORMATION
  Report Type: Spontaneous
  Country: US (occurrence: None)
  Receive Date: 20160422
  Receipt Date: 20160422
  Transmission Date: 20160815
  Serious: Yes (Other)
  Sender: FDA-Public Use
  Company Number: None

PATIENT
  Age: 35 Year
  Sex: Male

DRUGS (2)
  1. QUETIAPINE 300MG [Suspect]
     Active Substance: QUETIAPINE
     Route: 048
     Dates: start: 20160321
  2. QUETIAPINE 400MG [Suspect]
     Active Substance: QUETIAPINE
     Route: 048
     Dates: start: 20160407

REACTIONS (2)
  - Rash [None]
  - Product substitution issue [None]
